FAERS Safety Report 5039919-X (Version None)
Quarter: 2006Q2

REPORT INFORMATION
  Report Type: 
  Country: None (occurrence: None)
  Receive Date: 20060630
  Receipt Date: 20030730
  Transmission Date: 20061013
  Serious: Yes (Hospitalization, Disabling)
  Sender: FDA-Public Use
  Company Number: NSADSS2003010263

PATIENT
  Sex: Male
  Weight: 33.11 kg

DRUGS (9)
  1. REMICADE [Suspect]
     Indication: CROHN'S DISEASE
     Route: 041
  2. MESALAMINE [Concomitant]
     Indication: CROHN'S DISEASE
  3. 6-MP [Concomitant]
     Indication: CROHN'S DISEASE
  4. ANTIBIOTICS [Concomitant]
     Indication: CROHN'S DISEASE
  5. NARCOTIC ANALGESICS [Concomitant]
     Indication: CROHN'S DISEASE
  6. B 12 [Concomitant]
  7. FOSAMAX [Concomitant]
  8. COUMADIN [Concomitant]
  9. ACETAMINOPHEN [Concomitant]
     Indication: PREMEDICATION

REACTIONS (1)
  - ARTHRITIS [None]
